FAERS Safety Report 25195265 (Version 2)
Quarter: 2025Q2

REPORT INFORMATION
  Report Type: Spontaneous
  Country: GB (occurrence: GB)
  Receive Date: 20250415
  Receipt Date: 20250415
  Transmission Date: 20250717
  Serious: Yes (Life-Threatening, Other)
  Sender: JUBILANT
  Company Number: None

PATIENT
  Age: 40 Year
  Sex: Female
  Weight: 70 kg

DRUGS (18)
  1. ZOLMITRIPTAN [Suspect]
     Active Substance: ZOLMITRIPTAN
     Indication: Migraine
     Route: 065
     Dates: start: 2019, end: 20250314
  2. ZOLMITRIPTAN [Suspect]
     Active Substance: ZOLMITRIPTAN
     Route: 065
     Dates: start: 20250207, end: 20250307
  3. PREGABALIN [Concomitant]
     Active Substance: PREGABALIN
     Indication: Back pain
     Route: 065
     Dates: start: 20241031
  4. LANSOPRAZOLE [Concomitant]
     Active Substance: LANSOPRAZOLE
     Indication: Product used for unknown indication
     Route: 065
     Dates: start: 20241213
  5. NAPROXEN [Concomitant]
     Active Substance: NAPROXEN
     Indication: Product used for unknown indication
     Route: 065
     Dates: start: 20241031
  6. SOLIFENACIN [Concomitant]
     Active Substance: SOLIFENACIN
     Indication: Pollakiuria
     Route: 065
     Dates: start: 20241031
  7. SUMATRIPTAN [Concomitant]
     Active Substance: SUMATRIPTAN
     Indication: Pollakiuria
     Route: 065
     Dates: start: 20241031, end: 20250113
  8. CANDESARTAN [Concomitant]
     Active Substance: CANDESARTAN
     Indication: Migraine prophylaxis
     Dates: start: 20241031, end: 20250113
  9. CHOLECALCIFEROL [Concomitant]
     Active Substance: CHOLECALCIFEROL
     Indication: Product used for unknown indication
     Route: 065
     Dates: start: 20250127, end: 20250226
  10. OTOMIZE [Concomitant]
     Indication: Product used for unknown indication
     Route: 065
     Dates: start: 20250212, end: 20250219
  11. FLUCLOXACILLIN [Concomitant]
     Active Substance: FLUCLOXACILLIN
     Indication: Product used for unknown indication
     Route: 065
     Dates: start: 20250212, end: 20250219
  12. PROCHLORPERAZINE [Concomitant]
     Active Substance: PROCHLORPERAZINE
     Indication: Product used for unknown indication
     Route: 065
     Dates: start: 20250311, end: 20250318
  13. HUXD3 [Concomitant]
     Indication: Product used for unknown indication
     Route: 065
     Dates: start: 20250318, end: 20250319
  14. ZOPICLONE [Concomitant]
     Active Substance: ZOPICLONE
     Indication: Product used for unknown indication
     Route: 065
     Dates: start: 20250318
  15. CYCLIZINE [Concomitant]
     Active Substance: CYCLIZINE
     Indication: Product used for unknown indication
     Route: 065
     Dates: start: 20250318, end: 20250319
  16. SERTRALINE [Concomitant]
     Active Substance: SERTRALINE HYDROCHLORIDE
     Indication: Product used for unknown indication
     Route: 065
     Dates: start: 20250318
  17. ETORICOXIB [Concomitant]
     Active Substance: ETORICOXIB
     Indication: Product used for unknown indication
     Route: 065
     Dates: start: 20250325
  18. PIZOTYLINE [Concomitant]
     Active Substance: PIZOTYLINE
     Indication: Product used for unknown indication
     Route: 065
     Dates: start: 20250325

REACTIONS (3)
  - Tongue oedema [Recovered/Resolved]
  - Dyspnoea [Recovered/Resolved]
  - Swollen tongue [Recovered/Resolved]
